FAERS Safety Report 25913731 (Version 1)
Quarter: 2025Q4

REPORT INFORMATION
  Report Type: Spontaneous
  Country: EU (occurrence: EU)
  Receive Date: 20251013
  Receipt Date: 20251013
  Transmission Date: 20260117
  Serious: Yes (Other)
  Sender: ASCEND THERAPEUTICS US, LLC
  Company Number: EU-Ascend Therapeutics US, LLC-2186442

PATIENT
  Sex: Female

DRUGS (3)
  1. ESTROGEL [Suspect]
     Active Substance: ESTRADIOL
     Indication: Product used for unknown indication
  2. ESTRADIOL [Suspect]
     Active Substance: ESTRADIOL
  3. PROGESTERONE [Suspect]
     Active Substance: PROGESTERONE

REACTIONS (3)
  - Colitis ulcerative [Unknown]
  - Therapeutic product effect decreased [Unknown]
  - Product prescribing issue [Unknown]
